FAERS Safety Report 4436505-7 (Version None)
Quarter: 2004Q3

REPORT INFORMATION
  Report Type: 
  Country: None (occurrence: None)
  Receive Date: 20040830
  Receipt Date: 20040604
  Transmission Date: 20050211
  Serious: No
  Sender: FDA-Public Use
  Company Number: US-BRISTOL-MYERS SQUIBB COMPANY-12605812

PATIENT
  Age: 49 Year
  Sex: Female
  Weight: 59 kg

DRUGS (8)
  1. ABILIFY [Suspect]
     Indication: DEPRESSION
     Route: 048
  2. XYREM [Concomitant]
  3. AMBIEN [Concomitant]
  4. KLONOPIN [Concomitant]
  5. XANAX [Concomitant]
  6. WELLBUTRIN [Concomitant]
  7. ADVAIR DISKUS 100/50 [Concomitant]
  8. MULTI-VITAMIN [Concomitant]

REACTIONS (4)
  - ANXIETY [None]
  - DYSGEUSIA [None]
  - HEADACHE [None]
  - INSOMNIA [None]
